FAERS Safety Report 4698476-8 (Version None)
Quarter: 2005Q2

REPORT INFORMATION
  Report Type: 
  Country: None (occurrence: None)
  Receive Date: 20050622
  Receipt Date: 20050607
  Transmission Date: 20051028
  Serious: Yes (Hospitalization)
  Sender: FDA-Public Use
  Company Number: 8010841

PATIENT
  Sex: Male
  Weight: 84.09 kg

DRUGS (7)
  1. LORTAB           /00607101/ [Suspect]
     Indication: PAIN
     Dosage: PRN PO
     Route: 048
     Dates: start: 20030101
  2. TYLENOL        /00724201/ [Suspect]
     Indication: PAIN
     Dosage: 500 MG PO A FEW YEARS
     Route: 048
  3. TYLENOL                      /00724201/ [Suspect]
     Indication: PAIN
     Dosage: PO
     Route: 048
     Dates: start: 20030101, end: 20050501
  4. TYLENOL                                         /00724201/ [Suspect]
     Indication: PAIN
     Dosage: PO
     Route: 048
     Dates: start: 20050501
  5. ADDERALL [Concomitant]
  6. PHENOBARBITAL [Concomitant]
  7. MULTI-VITAMINS [Concomitant]

REACTIONS (10)
  - CONDITION AGGRAVATED [None]
  - CONVULSION [None]
  - DEPRESSION [None]
  - MALAISE [None]
  - PAIN [None]
  - SKIN DISCOLOURATION [None]
  - SUICIDAL IDEATION [None]
  - TENDERNESS [None]
  - TREATMENT NONCOMPLIANCE [None]
  - VOMITING [None]
